FAERS Safety Report 17805161 (Version 1)
Quarter: 2020Q2

REPORT INFORMATION
  Report Type: Spontaneous
  Country: DE (occurrence: DE)
  Receive Date: 20200520
  Receipt Date: 20200520
  Transmission Date: 20200714
  Serious: No
  Sender: FDA-Public Use
  Company Number: DE-LUPIN PHARMACEUTICALS INC.-2019-05596

PATIENT
  Age: 36 Year
  Sex: Female

DRUGS (1)
  1. QUETIAPIN-HORMOSAN 200 MG FILMTABLETTEN [Suspect]
     Active Substance: QUETIAPINE FUMARATE
     Indication: PRODUCT USED FOR UNKNOWN INDICATION
     Dosage: ONE IN THE MORNING, ONE AT LUNCHTIME, 2 IN THE EVENING
     Route: 048

REACTIONS (2)
  - Product use complaint [Unknown]
  - Product quality issue [Unknown]
